FAERS Safety Report 5406372-3 (Version None)
Quarter: 2007Q3

REPORT INFORMATION
  Report Type: 
  Country: None (occurrence: None)
  Receive Date: 20070806
  Receipt Date: 20070806
  Transmission Date: 20080115
  Serious: Yes (Other)
  Sender: FDA-Public Use
  Company Number: CA-ABBOTT-06P-028-0348987-00

PATIENT
  Sex: Female

DRUGS (3)
  1. SYNTHROID [Suspect]
     Indication: DRUG USE FOR UNKNOWN INDICATION
     Route: 048
  2. CIMICIFUGA RACEMOSA ROOT [Suspect]
     Indication: HOT FLUSH
     Route: 048
     Dates: start: 20060501
  3. CIMICIFUGA RACEMOSA ROOT [Suspect]
     Indication: MENOPAUSE

REACTIONS (2)
  - THYROTOXIC CRISIS [None]
  - THYROXINE FREE ABNORMAL [None]
